FAERS Safety Report 8889248 (Version 2)
Quarter: 2012Q4

REPORT INFORMATION
  Report Type: 
  Country: FR (occurrence: FR)
  Receive Date: 20121106
  Receipt Date: 20121120
  Transmission Date: 20130627
  Serious: Yes (Hospitalization, Other)
  Sender: FDA-Public Use
  Company Number: FR-PFIZER INC-2012272338

PATIENT
  Age: 77 Year
  Sex: Female

DRUGS (12)
  1. LYRICA [Suspect]
     Dosage: 100 mg, 1x/day
     Route: 048
     Dates: start: 20120504, end: 20121001
  2. METFORMIN HCL [Suspect]
     Indication: DIABETES MELLITUS
     Dosage: 500 mg, 2x/day
     Route: 048
     Dates: start: 20120928, end: 20121001
  3. ARCOXIA [Suspect]
     Indication: ARTHROSIS MULTIPLE
     Dosage: 60 mg, 1x/day
     Route: 048
     Dates: end: 20121001
  4. IXPRIM [Suspect]
     Indication: ARTHROSIS MULTIPLE
     Dosage: 2 DF, 3x/day
     Route: 048
     Dates: end: 20121001
  5. HYDROCHLOROTHIAZIDE [Suspect]
     Indication: HYPERTENSION
     Dosage: 25 mg, 1x/day
     Route: 048
     Dates: end: 20121001
  6. CORTANCYL [Suspect]
     Indication: ARTHROSIS MULTIPLE
     Dosage: 5 mg, 1x/day
     Route: 048
     Dates: end: 20121001
  7. ACEBUTOLOL [Concomitant]
     Dosage: 200 mg, 1x/day
     Route: 048
  8. CAPTOPRIL [Concomitant]
     Dosage: 50 mg, 1x/day
     Route: 048
  9. LORAZEPAM [Concomitant]
     Dosage: 2.5 mg, 1x/day
     Route: 048
  10. PANTOPRAZOLE [Concomitant]
     Dosage: 20 mg, 1x/day
     Route: 048
  11. ASCORBIC ACID/HESPERIDIN METHYL CHALCONE/RUSCUS ACULEATUS [Concomitant]
     Dosage: 1 DF, 2x/day
     Route: 048
     Dates: end: 20121001
  12. DUPHALAC [Concomitant]
     Dosage: 10 g, as needed
     Route: 048

REACTIONS (6)
  - Disorientation [Recovered/Resolved]
  - Somnolence [Recovered/Resolved]
  - Confusional state [Recovered/Resolved]
  - Vomiting [Recovered/Resolved]
  - Pneumonia [Recovered/Resolved]
  - Cognitive disorder [Recovered/Resolved]
